FAERS Safety Report 8928086 (Version 1)
Quarter: 2012Q4

REPORT INFORMATION
  Report Type: Spontaneous
  Country: US (occurrence: None)
  Receive Date: 20121120
  Receipt Date: 20121120
  Transmission Date: 20130627
  Serious: No
  Sender: FDA-Public Use
  Company Number: SPI201200294

PATIENT
  Age: 58 Year
  Sex: Female
  Weight: 72.6 kg

DRUGS (4)
  1. AMITIZA [Suspect]
     Indication: CHRONIC IDIOPATHIC CONSTIPATION
     Route: 048
     Dates: start: 201207
  2. WELLBUTRIN (BUPROPION) [Concomitant]
  3. SYNTHROID (LEVOTHYROXINE SODIUM) [Concomitant]
  4. CYTOMEL (LIOTHYRONINE SODIUM) [Concomitant]

REACTIONS (1)
  - Chest discomfort [None]
